FAERS Safety Report 23756280 (Version 2)
Quarter: 2024Q2

REPORT INFORMATION
  Report Type: Spontaneous
  Country: US (occurrence: US)
  Receive Date: 20240418
  Receipt Date: 20240508
  Transmission Date: 20240716
  Serious: No
  Sender: FDA-Public Use
  Company Number: US-SA-SAC20240412000099

PATIENT
  Age: 30 Year
  Sex: Male
  Weight: 68.8 kg

DRUGS (6)
  1. FABRAZYME [Suspect]
     Active Substance: AGALSIDASE BETA
     Indication: Fabry^s disease
     Dosage: 1 MG/KG (IN TOTAL OF 70MG) AT A RATE OF 25ML/HR
     Route: 042
     Dates: start: 20220526, end: 20220526
  2. FABRAZYME [Suspect]
     Active Substance: AGALSIDASE BETA
     Dosage: 1 MG/KG (IN TOTAL OF 70MG) AT A RATE OF 25ML/HR
     Route: 042
     Dates: start: 20221026, end: 20221026
  3. FABRAZYME [Suspect]
     Active Substance: AGALSIDASE BETA
     Dosage: 1 MG/KG (IN TOTAL OF 70MG) AT A RATE OF 25ML/HR
     Route: 042
     Dates: start: 20221109, end: 20221109
  4. CLARITIN [Concomitant]
     Active Substance: LORATADINE
     Indication: Premedication
     Dosage: THE NIGHT BEFORE AND JUST PRIOR TO THE INFUSION
     Route: 048
     Dates: start: 20221109
  5. IBUPROFEN [Concomitant]
     Active Substance: IBUPROFEN
     Indication: Premedication
     Dosage: THE NIGHT BEFORE AND JUST PRIOR TO THE INFUSION
     Route: 048
     Dates: start: 20221109
  6. ALUMINUM HYDROXIDE\MAGNESIUM TRISILICATE\SODIUM ALGINATE [Concomitant]
     Active Substance: ALUMINUM HYDROXIDE\MAGNESIUM TRISILICATE\SODIUM ALGINATE
     Indication: Premedication
     Dosage: UNK
     Route: 048
     Dates: start: 20221123

REACTIONS (7)
  - Fatigue [Recovered/Resolved]
  - Headache [Recovered/Resolved]
  - Dyspnoea [Recovered/Resolved]
  - Chills [Recovered/Resolved]
  - Tachycardia [Recovered/Resolved]
  - Flushing [Recovered/Resolved]
  - Pyrexia [Recovered/Resolved]

NARRATIVE: CASE EVENT DATE: 20220526
